FAERS Safety Report 17840311 (Version 1)
Quarter: 2020Q2

REPORT INFORMATION
  Report Type: Spontaneous
  Country: ES (occurrence: ES)
  Receive Date: 20200529
  Receipt Date: 20200529
  Transmission Date: 20200714
  Serious: Yes (Hospitalization)
  Sender: FDA-Public Use
  Company Number: ES-TEVA-2020-ES-1241293

PATIENT
  Age: 44 Year
  Sex: Female

DRUGS (2)
  1. CARBOPLATINO (2323A) [Suspect]
     Active Substance: CARBOPLATIN
     Dates: start: 20191010
  2. PACLITAXEL (2698A) [Suspect]
     Active Substance: PACLITAXEL
     Dates: start: 20191010

REACTIONS (2)
  - Hyperbilirubinaemia [Recovered/Resolved]
  - Pancytopenia [Recovered/Resolved]

NARRATIVE: CASE EVENT DATE: 20191111
